FAERS Safety Report 8610446 (Version 3)
Quarter: 2012Q4

REPORT INFORMATION
  Report Type: 
  Country: GB (occurrence: GB)
  Receive Date: 20120612
  Receipt Date: 20121120
  Transmission Date: 20130627
  Serious: Yes (Death)
  Sender: FDA-Public Use
  Company Number: GB-WATSON-2012-09787

PATIENT
  Age: 49 Year
  Sex: Male

DRUGS (5)
  1. CITALOPRAM HYDROBROMIDE (UNKNOWN) [Suspect]
     Indication: DEPRESSED MOOD
     Dosage: 20 mg, unknown
     Route: 048
     Dates: start: 20101001, end: 20101018
  2. DULOXETINE [Suspect]
     Indication: AGITATED DEPRESSION
     Dosage: 60 mg, unknown
     Route: 048
     Dates: start: 20101019, end: 20101229
  3. OLANZAPINE [Concomitant]
     Indication: PRODUCT USED FOR UNKNOWN INDICATION
     Route: 065
  4. DIAZEPAM [Concomitant]
     Indication: PRODUCT USED FOR UNKNOWN INDICATION
     Route: 065
  5. ZOPICLONE [Concomitant]
     Indication: PRODUCT USED FOR UNKNOWN INDICATION
     Route: 065

REACTIONS (3)
  - Suicidal ideation [Not Recovered/Not Resolved]
  - Completed suicide [Fatal]
  - Agitation [Not Recovered/Not Resolved]
